FAERS Safety Report 10179171 (Version 1)
Quarter: 2014Q2

REPORT INFORMATION
  Report Type: Spontaneous
  Country: US (occurrence: None)
  Receive Date: 20140516
  Receipt Date: 20140516
  Transmission Date: 20141212
  Serious: Yes (Other)
  Sender: FDA-Public Use
  Company Number: None

PATIENT
  Age: 74 Year
  Sex: Female
  Weight: 92.99 kg

DRUGS (8)
  1. TIZANIDINE [Suspect]
     Indication: MUSCLE RELAXANT THERAPY
     Dosage: 2 MG 1 TAB 2X/DAY MOUTH
     Route: 048
     Dates: start: 20140501, end: 20140501
  2. TIZANIDINE [Suspect]
     Indication: SLEEP DISORDER THERAPY
     Dosage: 2 MG 1 TAB 2X/DAY MOUTH
     Route: 048
     Dates: start: 20140501, end: 20140501
  3. LISINOPRIL [Concomitant]
  4. HYDROCODONE [Concomitant]
  5. SINGULAIR [Concomitant]
  6. MAGNESIUM [Concomitant]
  7. NALTOKINASE [Concomitant]
  8. B VITAMINS [Concomitant]

REACTIONS (3)
  - Dyspnoea [None]
  - Drug effect decreased [None]
  - Feeling abnormal [None]
